FAERS Safety Report 24571707 (Version 2)
Quarter: 2025Q2

REPORT INFORMATION
  Report Type: Report from Study
  Country: CA (occurrence: CA)
  Receive Date: 20241101
  Receipt Date: 20250402
  Transmission Date: 20250717
  Serious: Yes (Other)
  Sender: NOVARTIS
  Company Number: CA-002147023-NVSC2021CA090743

PATIENT
  Age: 3 Year
  Sex: Male

DRUGS (6)
  1. ELTROMBOPAG OLAMINE [Suspect]
     Active Substance: ELTROMBOPAG OLAMINE
     Indication: Immune thrombocytopenia
     Dosage: 25 MG, QD
     Route: 048
     Dates: start: 20200920
  2. ELTROMBOPAG OLAMINE [Suspect]
     Active Substance: ELTROMBOPAG OLAMINE
     Dosage: 25 MG, QD
     Route: 048
     Dates: start: 20200922, end: 20210718
  3. ELTROMBOPAG OLAMINE [Suspect]
     Active Substance: ELTROMBOPAG OLAMINE
     Dosage: 75 MG, QD (OLAMINE)
     Route: 048
     Dates: start: 20240620
  4. ELTROMBOPAG OLAMINE [Suspect]
     Active Substance: ELTROMBOPAG OLAMINE
     Dosage: 100 MG, QD
     Route: 048
  5. RITUXIMAB [Suspect]
     Active Substance: RITUXIMAB
     Indication: Immune thrombocytopenia
     Route: 065
  6. METHYLPREDNISOLONE [Concomitant]
     Active Substance: METHYLPREDNISOLONE
     Indication: Immune thrombocytopenia
     Route: 065

REACTIONS (16)
  - Platelet count increased [Recovered/Resolved]
  - Traumatic haemorrhage [Recovered/Resolved]
  - Abdominal discomfort [Recovered/Resolved]
  - Epistaxis [Recovered/Resolved]
  - Arthralgia [Recovered/Resolved]
  - Diarrhoea [Recovered/Resolved]
  - Irritability [Recovered/Resolved]
  - Off label use [Recovered/Resolved]
  - Fatigue [Recovered/Resolved]
  - Asthenia [Recovered/Resolved]
  - Mood altered [Recovered/Resolved]
  - Wrist fracture [Recovered/Resolved]
  - Contusion [Recovered/Resolved]
  - Petechiae [Recovered/Resolved]
  - Therapy non-responder [Recovered/Resolved]
  - Product use in unapproved indication [Recovered/Resolved]

NARRATIVE: CASE EVENT DATE: 20210418
